FAERS Safety Report 24883859 (Version 2)
Quarter: 2025Q1

REPORT INFORMATION
  Report Type: Spontaneous
  Country: AU (occurrence: AU)
  Receive Date: 20250124
  Receipt Date: 20250203
  Transmission Date: 20250409
  Serious: Yes (Life-Threatening, Hospitalization, Other)
  Sender: PURDUE
  Company Number: AU-PURDUE PHARMA-USA-2025-0314784

PATIENT
  Age: 4 Decade
  Sex: Female

DRUGS (5)
  1. OXYCODONE HYDROCHLORIDE [Suspect]
     Active Substance: OXYCODONE HYDROCHLORIDE
     Indication: Product used for unknown indication
     Route: 042
  2. OXYCONTIN [Suspect]
     Active Substance: OXYCODONE HYDROCHLORIDE
     Indication: Product used for unknown indication
     Dosage: 20 MILLIGRAM, BID (20 MILLIGRAM TWICE DAILY)
     Route: 048
  3. DULOXETINE [Concomitant]
     Active Substance: DULOXETINE
     Indication: Product used for unknown indication
     Dosage: 60 MILLIGRAM, DAILY (60 MG ONCE DAILY)
     Route: 065
  4. PANTOPRAZOLE [Concomitant]
     Active Substance: PANTOPRAZOLE
     Indication: Product used for unknown indication
     Dosage: 40 MILLIGRAM, DAILY (40 MILLIGRAM ONCE DAILY)
     Route: 065
  5. PREGABALIN [Concomitant]
     Active Substance: PREGABALIN
     Indication: Product used for unknown indication
     Dosage: 50 MILLIGRAM, BID (50 MILLIGRAM TWICE DAILY)
     Route: 065

REACTIONS (13)
  - Pulmonary arterial hypertension [Recovered/Resolved]
  - Wrong technique in product usage process [Recovered/Resolved]
  - Cardiac failure [Recovered/Resolved]
  - Pulmonary granuloma [Recovered/Resolved]
  - Incorrect route of product administration [Recovered/Resolved]
  - Superficial vein thrombosis [Unknown]
  - Subclavian vein thrombosis [Unknown]
  - Jugular vein thrombosis [Unknown]
  - Drug dependence [Unknown]
  - Respiratory failure [Recovered/Resolved]
  - Lung disorder [Recovered/Resolved]
  - Right ventricular failure [Recovered/Resolved]
  - Drug abuse [Unknown]
